FAERS Safety Report 6152929-4 (Version None)
Quarter: 2009Q2

REPORT INFORMATION
  Report Type: 
  Country: None (occurrence: None)
  Receive Date: 20090409
  Receipt Date: 20090330
  Transmission Date: 20091009
  Serious: Yes (Hospitalization, Disabling)
  Sender: FDA-Public Use
  Company Number: 2009001959

PATIENT
  Age: 45 Year
  Sex: Female

DRUGS (5)
  1. FENTORA [Suspect]
     Indication: BACK PAIN
     Dosage: 12000 MCG (800 MCG, 15 IN 1 D), BU
     Route: 002
     Dates: start: 20060101
  2. FENTORA [Suspect]
     Indication: SCOLIOSIS
     Dosage: 12000 MCG (800 MCG, 15 IN 1 D), BU
     Route: 002
     Dates: start: 20060101
  3. FENTORA [Suspect]
     Indication: SPINAL COLUMN STENOSIS
     Dosage: 12000 MCG (800 MCG, 15 IN 1 D), BU
     Route: 002
     Dates: start: 20060101
  4. AVINZA [Concomitant]
  5. SKELAXIN [Concomitant]

REACTIONS (7)
  - ANXIETY [None]
  - DRUG PRESCRIBING ERROR [None]
  - DRUG WITHDRAWAL SYNDROME [None]
  - HYPERVENTILATION [None]
  - MEDICATION ERROR [None]
  - PAIN [None]
  - TREMOR [None]
